FAERS Safety Report 25735787 (Version 1)
Quarter: 2025Q3

REPORT INFORMATION
  Report Type: Spontaneous
  Country: US (occurrence: US)
  Receive Date: 20250828
  Receipt Date: 20250828
  Transmission Date: 20251020
  Serious: No
  Sender: Kenvue
  Company Number: US-KENVUE-20250800055

PATIENT
  Sex: Female

DRUGS (1)
  1. MENS ROGAINE EXTRA STRENGTH [Suspect]
     Active Substance: MINOXIDIL
     Indication: Product used for unknown indication
     Route: 065
     Dates: start: 2019

REACTIONS (8)
  - Panic attack [Unknown]
  - Malaise [Unknown]
  - Application site dryness [Unknown]
  - Anxiety [Not Recovered/Not Resolved]
  - Palpitations [Unknown]
  - Dizziness [Not Recovered/Not Resolved]
  - Off label use [Unknown]
  - Adverse event [Recovered/Resolved]

NARRATIVE: CASE EVENT DATE: 20190101
